FAERS Safety Report 9627136 (Version 1)
Quarter: 2013Q4

REPORT INFORMATION
  Report Type: Spontaneous
  Country: NL (occurrence: NL)
  Receive Date: 20131016
  Receipt Date: 20131016
  Transmission Date: 20140711
  Serious: Yes (Other)
  Sender: FDA-Public Use
  Company Number: NL-PFIZER INC-2013293227

PATIENT
  Sex: 0

DRUGS (1)
  1. ATORVASTATIN PFIZER [Suspect]
     Dosage: 20 MG, UNK

REACTIONS (1)
  - Dysphagia [Unknown]
